FAERS Safety Report 8161936-1 (Version None)
Quarter: 2012Q1

REPORT INFORMATION
  Report Type: 
  Country: None (occurrence: None)
  Receive Date: 20120103
  Receipt Date: 20110928
  Transmission Date: 20120608
  Serious: No
  Sender: FDA-Public Use
  Company Number: AE-2011-001879

PATIENT
  Age: 56 Year
  Sex: Female
  Weight: 115.2136 kg

DRUGS (8)
  1. RIBAVIRIN [Concomitant]
  2. COMBIVENT [Concomitant]
  3. INCIVEK [Suspect]
     Dosage: 2250 MG (750 MG, 1 IN 8 HR), ORAL
     Route: 048
     Dates: start: 20110824
  4. ALBUTEROL [Concomitant]
  5. LISINOPRIL [Concomitant]
  6. HYDROCHLOROTHIAZIDE [Concomitant]
  7. FLOVENT [Concomitant]
  8. PEGASUS (PEGINTERFERON ALFA-2A) [Concomitant]

REACTIONS (4)
  - ANXIETY [None]
  - DEPRESSION [None]
  - DIARRHOEA [None]
  - ANAL PRURITUS [None]
